FAERS Safety Report 9917368 (Version 1)
Quarter: 2014Q1

REPORT INFORMATION
  Report Type: Spontaneous
  Country: US (occurrence: US)
  Receive Date: 20140221
  Receipt Date: 20140221
  Transmission Date: 20141002
  Serious: No
  Sender: FDA-Public Use
  Company Number: US-PFIZER INC-2014050658

PATIENT
  Age: 52 Year
  Sex: Female
  Weight: 54.42 kg

DRUGS (3)
  1. NEURONTIN [Suspect]
     Indication: PAIN
     Dosage: 1500 MG, 3X/DAY
  2. NEURONTIN [Suspect]
     Indication: SPINAL CORD INJURY
  3. SYNTHROID [Concomitant]
     Indication: HYPOTHYROIDISM
     Dosage: 200 UG, 1X/DAY

REACTIONS (2)
  - Intentional drug misuse [Unknown]
  - Drug ineffective for unapproved indication [Unknown]
